FAERS Safety Report 9737571 (Version 2)
Quarter: 2013Q4

REPORT INFORMATION
  Report Type: Spontaneous
  Country: NL (occurrence: NL)
  Receive Date: 20131208
  Receipt Date: 20131219
  Transmission Date: 20140711
  Serious: Yes (Congenital Anomaly, Other)
  Sender: FDA-Public Use
  Company Number: NL-TEVA-447551ISR

PATIENT
  Sex: 0

DRUGS (5)
  1. VENLAFAXINE PCH RETARD CAPSULES 37.5 [Suspect]
     Indication: DEPRESSION
     Dosage: 37.5 MILLIGRAM DAILY;
     Route: 050
     Dates: start: 201305
  2. MAXALT [Interacting]
     Indication: MIGRAINE
     Route: 050
     Dates: start: 2012
  3. PARACETAMOL TABLET 500MG [Concomitant]
     Dosage: TWICE A WEEK TWO PIECES
     Route: 050
     Dates: start: 1997
  4. IBUPROFEN TABLET 200MG [Concomitant]
     Dosage: ONCE A WEEK TWO PIECES
     Route: 050
     Dates: start: 1998
  5. ASPIRINE TABLET 500MG [Concomitant]
     Dosage: ONCE A WEEK TWO PIECES
     Route: 050
     Dates: start: 1997

REACTIONS (3)
  - Heart disease congenital [Not Recovered/Not Resolved]
  - Hypoplastic right heart syndrome [Unknown]
  - Drug interaction [Unknown]
